FAERS Safety Report 7582833-6 (Version None)
Quarter: 2011Q2

REPORT INFORMATION
  Report Type: 
  Country: None (occurrence: None)
  Receive Date: 20110630
  Receipt Date: 20110621
  Transmission Date: 20111010
  Serious: Yes (Hospitalization, Congenital Anomaly, Other)
  Sender: FDA-Public Use
  Company Number: ZA-NOVOPROD-330491

PATIENT
  Sex: Female
  Weight: 3.2 kg

DRUGS (2)
  1. NOVOLOG MIX 70/30 [Suspect]
     Indication: DRUG EXPOSURE DURING PREGNANCY
     Dosage: UNK
     Route: 064
     Dates: start: 20110201
  2. NOVORAPID FLEXPEN [Suspect]
     Indication: DRUG EXPOSURE DURING PREGNANCY
     Dosage: UNK
     Route: 064
     Dates: start: 20110201

REACTIONS (2)
  - DRUG EXPOSURE DURING PREGNANCY [None]
  - CLEFT PALATE [None]
